FAERS Safety Report 6295840-0 (Version None)
Quarter: 2009Q3

REPORT INFORMATION
  Report Type: 
  Country: None (occurrence: None)
  Receive Date: 20090804
  Receipt Date: 20090727
  Transmission Date: 20100115
  Serious: No
  Sender: FDA-Public Use
  Company Number: BR-ROCHE-585273

PATIENT
  Age: 26 Year
  Sex: Female
  Weight: 48 kg

DRUGS (2)
  1. ROACUTAN [Suspect]
     Indication: ACNE
     Route: 048
     Dates: start: 20080401, end: 20080801
  2. DIANE 35 [Concomitant]
     Indication: CONTRACEPTION
     Route: 048
     Dates: start: 20080101, end: 20080801

REACTIONS (2)
  - NO ADVERSE EVENT [None]
  - PREGNANCY [None]
